FAERS Safety Report 22717374 (Version 4)
Quarter: 2024Q2

REPORT INFORMATION
  Report Type: Spontaneous
  Country: US (occurrence: US)
  Receive Date: 20230718
  Receipt Date: 20240415
  Transmission Date: 20240716
  Serious: No
  Sender: FDA-Public Use
  Company Number: US-BIOGEN-2022BI01116740

PATIENT
  Sex: Male

DRUGS (1)
  1. TYSABRI [Suspect]
     Active Substance: NATALIZUMAB
     Indication: Multiple sclerosis
     Route: 050
     Dates: start: 20191011, end: 20230728

REACTIONS (3)
  - Memory impairment [Unknown]
  - Malaise [Recovered/Resolved]
  - Anxiety [Unknown]
